FAERS Safety Report 11615624 (Version 1)
Quarter: 2015Q4

REPORT INFORMATION
  Report Type: Spontaneous
  Country: US (occurrence: None)
  Receive Date: 20151008
  Receipt Date: 20151008
  Transmission Date: 20160304
  Serious: Yes (Disabling)
  Sender: FDA-Public Use
  Company Number: None

PATIENT
  Age: 49 Year
  Sex: Female
  Weight: 73.48 kg

DRUGS (3)
  1. BUPROPION. [Suspect]
     Active Substance: BUPROPION
     Indication: DEPRESSION
     Dosage: 1 PILL TWICE DAILY
     Route: 048
     Dates: start: 20150914, end: 20151007
  2. CYMBALTA [Concomitant]
     Active Substance: DULOXETINE HYDROCHLORIDE
  3. BUPROPION. [Suspect]
     Active Substance: BUPROPION
     Indication: BIPOLAR DISORDER
     Dosage: 1 PILL TWICE DAILY
     Route: 048
     Dates: start: 20150914, end: 20151007

REACTIONS (8)
  - Insomnia [None]
  - Suicidal ideation [None]
  - Nausea [None]
  - Mood swings [None]
  - Feeling jittery [None]
  - Fatigue [None]
  - Depression [None]
  - Anxiety [None]
